FAERS Safety Report 4666600-9 (Version None)
Quarter: 2005Q2

REPORT INFORMATION
  Report Type: 
  Country: None (occurrence: None)
  Receive Date: 20050519
  Receipt Date: 20041222
  Transmission Date: 20051028
  Serious: Yes (Other)
  Sender: FDA-Public Use
  Company Number: PHBS2004CH17157

PATIENT
  Age: 71 Year
  Sex: Female

DRUGS (5)
  1. ZOMETA [Suspect]
     Indication: MULTIPLE MYELOMA
     Dosage: 1 DF, QMO
     Dates: start: 20031001, end: 20041101
  2. PREDNISONE TAB [Suspect]
     Indication: MULTIPLE MYELOMA
     Dates: start: 20020101, end: 20021201
  3. AREDIA [Suspect]
     Indication: MULTIPLE MYELOMA
     Dosage: 1 DF, QMO
     Dates: start: 20020101, end: 20030901
  4. PANTOPRAZOLE SODIUM [Concomitant]
     Indication: GASTRIC ULCER
     Dosage: 20 MG/D
     Dates: start: 20030601
  5. TRANSTEC TTS [Concomitant]
     Dates: start: 20020501

REACTIONS (2)
  - OSTEONECROSIS [None]
  - PAIN [None]
